FAERS Safety Report 15349240 (Version 1)
Quarter: 2018Q4

REPORT INFORMATION
  Report Type: Spontaneous
  Country: FR (occurrence: FR)
  Receive Date: 20180904
  Receipt Date: 20180904
  Transmission Date: 20190204
  Serious: Yes (Death)
  Sender: FDA-Public Use
  Company Number: FR-JNJFOC-20180900285

PATIENT
  Age: 92 Year
  Sex: Male
  Weight: 75 kg

DRUGS (4)
  1. IXPRIM [Suspect]
     Active Substance: ACETAMINOPHEN\TRAMADOL HYDROCHLORIDE
     Indication: HEREDITARY MOTOR AND SENSORY NEUROPATHY
     Route: 048
  2. HYOSCINE [Suspect]
     Active Substance: SCOPOLAMINE
     Indication: HEREDITARY MOTOR AND SENSORY NEUROPATHY
     Route: 062
  3. RIVOTRIL [Suspect]
     Active Substance: CLONAZEPAM
     Indication: HEREDITARY MOTOR AND SENSORY NEUROPATHY
     Route: 048
  4. LAMALINE (ATROPA BELLADONNA EXTRACT\CAFFEINE\PAPAVER SOMNIFERUM TINCTURE\PARACETAMOL) [Suspect]
     Active Substance: ACETAMINOPHEN\BELLADONNA LEAF\CAFFEINE\OPIUM
     Indication: HEREDITARY MOTOR AND SENSORY NEUROPATHY
     Route: 048

REACTIONS (4)
  - Urinary retention [Fatal]
  - Confusional state [Fatal]
  - Sepsis [Fatal]
  - Constipation [Fatal]

NARRATIVE: CASE EVENT DATE: 20180324
